FAERS Safety Report 20583894 (Version 1)
Quarter: 2022Q1

REPORT INFORMATION
  Report Type: Spontaneous
  Country: US (occurrence: None)
  Receive Date: 20220311
  Receipt Date: 20220311
  Transmission Date: 20220423
  Serious: No
  Sender: FDA-Public Use
  Company Number: None

PATIENT
  Sex: Male

DRUGS (1)
  1. INLYTA [Suspect]
     Active Substance: AXITINIB
     Indication: Lung neoplasm
     Dosage: 50MG TWICE DAILY ORAL?
     Route: 048

REACTIONS (5)
  - Thrombosis [None]
  - Pulmonary thrombosis [None]
  - Dry throat [None]
  - Dysphagia [None]
  - Constipation [None]
